FAERS Safety Report 13206550 (Version 1)
Quarter: 2017Q1

REPORT INFORMATION
  Report Type: Spontaneous
  Country: US (occurrence: US)
  Receive Date: 20170209
  Receipt Date: 20170209
  Transmission Date: 20170428
  Serious: No
  Sender: FDA-Public Use
  Company Number: US-SA-2016SA212499

PATIENT
  Age: 74 Year
  Sex: Female

DRUGS (6)
  1. ZETIA [Suspect]
     Active Substance: EZETIMIBE
     Route: 065
  2. LIPITOR [Concomitant]
     Active Substance: ATORVASTATIN CALCIUM
  3. PRALUENT [Suspect]
     Active Substance: ALIROCUMAB
     Indication: BLOOD CHOLESTEROL
     Route: 065
     Dates: start: 201606, end: 20161111
  4. ZETIA [Suspect]
     Active Substance: EZETIMIBE
     Route: 065
     Dates: start: 201608
  5. CRESTOR [Concomitant]
     Active Substance: ROSUVASTATIN CALCIUM
  6. ALIROCUMAB PREFILLED PEN [Concomitant]
     Active Substance: ALIROCUMAB
     Indication: BLOOD CHOLESTEROL
     Dates: start: 201606, end: 20161111

REACTIONS (3)
  - Alopecia [Not Recovered/Not Resolved]
  - Confusional state [Not Recovered/Not Resolved]
  - Drug dose omission [Unknown]

NARRATIVE: CASE EVENT DATE: 201611
